FAERS Safety Report 8310606-5 (Version None)
Quarter: 2012Q2

REPORT INFORMATION
  Report Type: 
  Country: None (occurrence: None)
  Receive Date: 20120425
  Receipt Date: 20120425
  Transmission Date: 20120825
  Serious: No
  Sender: FDA-Public Use
  Company Number: None

PATIENT
  Age: 66 Year
  Sex: Male
  Weight: 108.86 kg

DRUGS (1)
  1. MIRALAX [Suspect]

REACTIONS (1)
  - ATRIAL FLUTTER [None]
